FAERS Safety Report 9888586 (Version 7)
Quarter: 2018Q3

REPORT INFORMATION
  Report Type: Report from Study
  Country: US (occurrence: US)
  Receive Date: 20140211
  Receipt Date: 20180711
  Transmission Date: 20181010
  Serious: Yes (Hospitalization, Other)
  Sender: FDA-Public Use
  Company Number: US-SA-2013SA118271

PATIENT
  Age: 65 Year
  Sex: Male

DRUGS (19)
  1. AGALSIDASE BETA [Suspect]
     Active Substance: AGALSIDASE BETA
     Dosage: 75 UNK
     Route: 041
     Dates: start: 20040513
  2. WARFARIN SODIUM. [Suspect]
     Active Substance: WARFARIN SODIUM
     Indication: PRODUCT USED FOR UNKNOWN INDICATION
     Dosage: 4 MG,QD
     Route: 065
  3. ACETYLSALICYLIC ACID [Concomitant]
     Active Substance: ASPIRIN
     Dosage: 81 MG,QD
     Dates: start: 20060717
  4. GENGRAF [Concomitant]
     Active Substance: CYCLOSPORINE
     Dosage: 100 MG,BID
     Dates: start: 20000717
  5. SULFAMETHOXAZOLE [Concomitant]
     Active Substance: SULFAMETHOXAZOLE
     Dosage: 6.5 DF,TIW
     Dates: start: 20060717
  6. ERGOCALCIFEROL. [Concomitant]
     Active Substance: ERGOCALCIFEROL
     Dosage: 1000 DF,QD
     Dates: start: 20120718
  7. OYST?CAL [Concomitant]
     Dosage: 500 MG,BID
     Dates: start: 19850601
  8. AGALSIDASE BETA [Suspect]
     Active Substance: AGALSIDASE BETA
     Indication: FABRY^S DISEASE
     Dosage: UNK UNK,QOW
     Route: 041
     Dates: start: 20040513
  9. ATORVASTATIN [Concomitant]
     Active Substance: ATORVASTATIN
     Dosage: 10 MG,QD
     Dates: start: 20060717
  10. CARBIDOPA/LEVODOPA [Concomitant]
     Active Substance: CARBIDOPA\LEVODOPA
     Dosage: 1 DF,TID
     Dates: start: 20110208
  11. DIPYRIDAMOLE. [Concomitant]
     Active Substance: DIPYRIDAMOLE
     Dosage: 50 MG,UNK
     Dates: start: 20061030
  12. VITAMINS NOS [Concomitant]
     Active Substance: VITAMINS
     Dosage: 1 DF,QD
     Dates: start: 20090223
  13. PHENYTOIN SODIUM. [Concomitant]
     Active Substance: PHENYTOIN SODIUM
     Dosage: 100 MG,UNK
     Dates: start: 20061003
  14. FERROUS SULPHATE [FERROUS SULFATE] [Concomitant]
     Dosage: 325 MG,QD
     Dates: start: 20060717
  15. PREDNISONE. [Concomitant]
     Active Substance: PREDNISONE
     Dosage: 5 MG,QD
     Dates: start: 20000101
  16. PARACETAMOL [Concomitant]
     Active Substance: ACETAMINOPHEN
     Indication: PAIN
     Dosage: UNK UNK,PRN
  17. ARICEPT [Concomitant]
     Active Substance: DONEPEZIL HYDROCHLORIDE
     Dosage: 5 MG,QD
     Dates: start: 20110208
  18. PHENYTOIN. [Suspect]
     Active Substance: PHENYTOIN
     Indication: PRODUCT USED FOR UNKNOWN INDICATION
     Dosage: UNK UNK,UNK
     Route: 065
  19. PANTOPRAZOLE SODIUM. [Concomitant]
     Active Substance: PANTOPRAZOLE SODIUM
     Dosage: 40 MG,QD
     Dates: start: 20060717

REACTIONS (8)
  - Overdose [Unknown]
  - Fall [Recovered/Resolved]
  - Muscle atrophy [Not Recovered/Not Resolved]
  - Asthenia [Not Recovered/Not Resolved]
  - Confusional state [Recovered/Resolved]
  - International normalised ratio increased [Recovered/Resolved]
  - Hospitalisation [Unknown]
  - Speech disorder [Recovered/Resolved]

NARRATIVE: CASE EVENT DATE: 201308
